FAERS Safety Report 23746199 (Version 2)
Quarter: 2024Q2

REPORT INFORMATION
  Report Type: Spontaneous
  Country: CN (occurrence: CN)
  Receive Date: 20240416
  Receipt Date: 20240418
  Transmission Date: 20240717
  Serious: Yes (Other)
  Sender: FDA-Public Use
  Company Number: CN-MLMSERVICE-20240329-4923745-1

PATIENT
  Age: 53 Year
  Sex: Male

DRUGS (2)
  1. OXALIPLATIN [Suspect]
     Active Substance: OXALIPLATIN
     Indication: Gastric cancer stage III
     Dosage: (150 MG D1) RECEIVED SIX CYCLES
     Dates: start: 2021
  2. TS-1 [Concomitant]
     Active Substance: GIMERACIL\OTERACIL POTASSIUM\TEGAFUR
     Indication: Gastric cancer stage III
     Dosage: 60 MG PO BID D1-D14), RECEIVED SIX CYCLES
     Route: 048
     Dates: start: 2021

REACTIONS (1)
  - Neurotoxicity [Unknown]

NARRATIVE: CASE EVENT DATE: 20210101
